FAERS Safety Report 14039792 (Version 2)
Quarter: 2017Q4

REPORT INFORMATION
  Report Type: Report from Study
  Country: US (occurrence: US)
  Receive Date: 20171004
  Receipt Date: 20171009
  Transmission Date: 20180321
  Serious: Yes (Death, Life-Threatening, Other)
  Sender: FDA-Public Use
  Company Number: PHHO2016US014507

PATIENT
  Age: 68 Year
  Sex: Male
  Weight: 101.6 kg

DRUGS (7)
  1. CYCLOPHOSPHAMIDE. [Concomitant]
     Active Substance: CYCLOPHOSPHAMIDE
     Indication: CHEMOTHERAPY
  2. CEFEPIME [Concomitant]
     Active Substance: CEFEPIME HYDROCHLORIDE
     Indication: FEBRILE NEUTROPENIA
  3. KYMRIAH [Suspect]
     Active Substance: TISAGENLECLEUCEL
     Indication: DIFFUSE LARGE B-CELL LYMPHOMA
     Dosage: 2.7975X10^8/L TRANSDUCED CELLS
     Route: 042
     Dates: start: 20160928, end: 20160928
  4. CYCLOPHOSPHAMIDE. [Concomitant]
     Active Substance: CYCLOPHOSPHAMIDE
     Indication: DIFFUSE LARGE B-CELL LYMPHOMA
     Dosage: 480 MG, (250 MG/M2)
     Route: 065
     Dates: start: 20160923, end: 20160925
  5. FLUDARABINE [Concomitant]
     Active Substance: FLUDARABINE PHOSPHATE
     Indication: DIFFUSE LARGE B-CELL LYMPHOMA
     Dosage: 48 MG, (25 MG/M2)
     Route: 065
     Dates: start: 20160923, end: 20160925
  6. FLUDARABINE [Concomitant]
     Active Substance: FLUDARABINE PHOSPHATE
     Indication: CHEMOTHERAPY
  7. CEFEPIME [Concomitant]
     Active Substance: CEFEPIME HYDROCHLORIDE
     Indication: CYTOKINE RELEASE SYNDROME
     Dosage: 2 G, (2 G Q12)
     Route: 042
     Dates: start: 20160929

REACTIONS (4)
  - Diffuse large B-cell lymphoma [Fatal]
  - Malignant neoplasm progression [Fatal]
  - Status epilepticus [Recovered/Resolved with Sequelae]
  - Cytokine release syndrome [Recovered/Resolved with Sequelae]

NARRATIVE: CASE EVENT DATE: 20160929
